FAERS Safety Report 4557842-1 (Version None)
Quarter: 2005Q1

REPORT INFORMATION
  Report Type: 
  Country: None (occurrence: None)
  Receive Date: 20050118
  Receipt Date: 20030901
  Transmission Date: 20050727
  Serious: No
  Sender: FDA-Public Use
  Company Number: 5914

PATIENT
  Age: 28 Year
  Sex: Female

DRUGS (1)
  1. METHOTREXATE [Suspect]
     Indication: ARTHRITIS
     Dosage: 10 MG WEEKLY
     Route: 048

REACTIONS (4)
  - ANOREXIA NERVOSA [None]
  - ARTHRITIS [None]
  - CONDITION AGGRAVATED [None]
  - WEIGHT INCREASED [None]
